FAERS Safety Report 9728564 (Version 1)
Quarter: 2013Q4

REPORT INFORMATION
  Report Type: Spontaneous
  Country: US (occurrence: US)
  Receive Date: 20131204
  Receipt Date: 20131204
  Transmission Date: 20140711
  Serious: Yes (Other)
  Sender: FDA-Public Use
  Company Number: US-ELI_LILLY_AND_COMPANY-US201311008260

PATIENT
  Sex: Female

DRUGS (9)
  1. EFFIENT [Suspect]
     Indication: STENT PLACEMENT
     Dosage: 10 MG, UNK
     Route: 048
     Dates: start: 20120307
  2. AMLODIPINE [Concomitant]
     Dosage: 5 MG, QD
  3. GABAPENTIN [Concomitant]
     Indication: PAIN
  4. PROZAC [Concomitant]
  5. HYDROCHLOROTHIAZIDE [Concomitant]
     Indication: DIURETIC THERAPY
     Dosage: 25 MG, QD
  6. CLONAZEPAM [Concomitant]
     Dosage: 1 MG, QD
  7. BABY ASPIRIN [Concomitant]
     Dosage: 2 DF, QD
  8. NAPROXEN [Concomitant]
     Dosage: 500 MG, PRN
  9. SYNTHROID [Concomitant]
     Dosage: 0.5 UG, QD

REACTIONS (5)
  - Chest discomfort [Recovered/Resolved]
  - Neoplasm malignant [Unknown]
  - Angina unstable [Not Recovered/Not Resolved]
  - Drug dose omission [Not Recovered/Not Resolved]
  - Pain [Unknown]
